FAERS Safety Report 16856830 (Version 1)
Quarter: 2019Q3

REPORT INFORMATION
  Report Type: Spontaneous
  Country: JP (occurrence: JP)
  Receive Date: 20190926
  Receipt Date: 20190926
  Transmission Date: 20191005
  Serious: Yes (Hospitalization, Other)
  Sender: FDA-Public Use
  Company Number: JP-ASTRAZENECA-2019SF12914

PATIENT
  Age: 612 Month
  Sex: Male
  Weight: 91 kg

DRUGS (4)
  1. FORXIGA [Suspect]
     Active Substance: DAPAGLIFLOZIN
     Indication: TYPE 2 DIABETES MELLITUS
     Route: 048
     Dates: start: 2017, end: 20190801
  2. CILNIDIPINE [Concomitant]
     Active Substance: CILNIDIPINE
     Indication: HYPERTENSION
     Route: 048
  3. AIMIX [Concomitant]
     Active Substance: AMLODIPINE BESYLATE\IRBESARTAN
     Indication: HYPERTENSION
     Route: 048
  4. GLUBES [Concomitant]
     Active Substance: MITIGLINIDE CALCIUM HYDRATE\VOGLIBOSE
     Route: 048

REACTIONS (3)
  - Dehydration [Recovered/Resolved]
  - Renal impairment [Recovered/Resolved]
  - Chronic kidney disease [Unknown]

NARRATIVE: CASE EVENT DATE: 201807
